FAERS Safety Report 18976010 (Version 1)
Quarter: 2021Q1

REPORT INFORMATION
  Report Type: Report from Study
  Country: None (occurrence: BE)
  Receive Date: 20210306
  Receipt Date: 20210306
  Transmission Date: 20210420
  Serious: Yes (Hospitalization, Other)
  Sender: FDA-Public Use
  Company Number: BE-ABBVIE-21K-013-3760550-00

PATIENT
  Age: 52 Year
  Sex: Male

DRUGS (4)
  1. HUMIRA [Suspect]
     Active Substance: ADALIMUMAB
     Dosage: STOP DATE:END JANUARY ? BEGIN FEBRUARY
     Route: 058
     Dates: start: 202007, end: 202102
  2. HUMIRA [Suspect]
     Active Substance: ADALIMUMAB
     Dosage: ONCE, ON WEEK 02
     Route: 058
     Dates: start: 20200210, end: 20200210
  3. HUMIRA [Suspect]
     Active Substance: ADALIMUMAB
     Route: 058
     Dates: start: 20200224, end: 202007
  4. HUMIRA [Suspect]
     Active Substance: ADALIMUMAB
     Indication: CROHN^S DISEASE
     Dosage: ONCE ON WEEK 00
     Route: 058
     Dates: start: 20200127, end: 20200127

REACTIONS (2)
  - Therapeutic product effect incomplete [Unknown]
  - Intestinal obstruction [Unknown]
